FAERS Safety Report 9632335 (Version 1)
Quarter: 2013Q4

REPORT INFORMATION
  Report Type: Spontaneous
  Country: CN (occurrence: None)
  Receive Date: 20131016
  Receipt Date: 20131016
  Transmission Date: 20140711
  Serious: Yes (Hospitalization)
  Sender: FDA-Public Use
  Company Number: SYM-2013-11546

PATIENT
  Age: 48 Year
  Sex: Male

DRUGS (15)
  1. 5 FU [Suspect]
     Indication: RECTOSIGMOID CANCER
     Route: 040
     Dates: start: 20130422, end: 20130422
  2. BLINDED THERAPY (OTHER THERAPEUTIC PRODUCTS) (SOLUTION FOR INFUSION) (NULL) [Suspect]
     Indication: RECTOSIGMOID CANCER
     Route: 041
     Dates: start: 20130422, end: 20130422
  3. IRINOTECAN [Suspect]
     Indication: RECTOSIGMOID CANCER
     Route: 041
     Dates: start: 20130422, end: 20130422
  4. LEUCOVORIN [Suspect]
     Indication: RECTOSIGMOID CANCER
     Route: 041
     Dates: start: 20130422, end: 20130422
  5. ESTAZOLAM [Concomitant]
  6. GLYCYRRHIZIC ACID [Concomitant]
  7. CETYLPYRIDINIUM CHLORIDE [Concomitant]
  8. PHOSPHATIDYL CHOLINE [Concomitant]
  9. ALPRAZOLAM [Concomitant]
  10. TRAMADOL HYDROCHLORIDE [Concomitant]
  11. TROPISETRON [Concomitant]
  12. OXYCODONE [Concomitant]
  13. METOCLOPRAMIDE [Concomitant]
  14. MONTMORILLONITE [Concomitant]
  15. VALSARTAN AND AMLODIPINE (OTHER THERAPEUTIC PRODUCTS) [Concomitant]

REACTIONS (1)
  - Hepatic function abnormal [None]
